FAERS Safety Report 5332727-1 (Version None)
Quarter: 2007Q2

REPORT INFORMATION
  Report Type: 
  Country: None (occurrence: None)
  Receive Date: 20070518
  Receipt Date: 20070504
  Transmission Date: 20071010
  Serious: Yes (Hospitalization, Other)
  Sender: FDA-Public Use
  Company Number: FSC_00111_2007

PATIENT
  Sex: Female

DRUGS (15)
  1. ISOPTIN [Suspect]
     Indication: ATRIAL FIBRILLATION
     Dosage: (60 MG QD ORAL), (60 MG 1X ORAL), (40 MG QD ORAL)
     Route: 048
     Dates: start: 20070324, end: 20070324
  2. ISOPTIN [Suspect]
     Indication: ATRIAL FLUTTER
     Dosage: (60 MG QD ORAL), (60 MG 1X ORAL), (40 MG QD ORAL)
     Route: 048
     Dates: start: 20070324, end: 20070324
  3. ISOPTIN [Suspect]
     Indication: BRADYCARDIA
     Dosage: (60 MG QD ORAL), (60 MG 1X ORAL), (40 MG QD ORAL)
     Route: 048
     Dates: start: 20070324, end: 20070324
  4. ISOPTIN [Suspect]
     Indication: ATRIAL FIBRILLATION
     Dosage: (60 MG QD ORAL), (60 MG 1X ORAL), (40 MG QD ORAL)
     Route: 048
     Dates: end: 20070324
  5. ISOPTIN [Suspect]
     Indication: ATRIAL FLUTTER
     Dosage: (60 MG QD ORAL), (60 MG 1X ORAL), (40 MG QD ORAL)
     Route: 048
     Dates: end: 20070324
  6. ISOPTIN [Suspect]
     Indication: BRADYCARDIA
     Dosage: (60 MG QD ORAL), (60 MG 1X ORAL), (40 MG QD ORAL)
     Route: 048
     Dates: end: 20070324
  7. METOPROLOL SUCCINATE [Suspect]
     Indication: ATRIAL FIBRILLATION
     Dosage: (50 MG 1X INTRAVENOUS)
     Route: 042
     Dates: start: 20070324, end: 20070324
  8. METOPROLOL SUCCINATE [Suspect]
     Indication: ATRIAL FLUTTER
     Dosage: (50 MG 1X INTRAVENOUS)
     Route: 042
     Dates: start: 20070324, end: 20070324
  9. TIATRAL /00110801/ [Concomitant]
  10. GABAPENTIN [Concomitant]
  11. RISPERIDONE [Concomitant]
  12. VENLAFAXIINE HCL [Concomitant]
  13. FLUNITRAZEPAM [Concomitant]
  14. PANTOPRAZOLE SODIUM [Concomitant]
  15. ELTROXIN [Concomitant]

REACTIONS (10)
  - ASTHENIA [None]
  - BRADYCARDIA [None]
  - CARDIAC MURMUR [None]
  - DRUG INTERACTION [None]
  - DYSPNOEA [None]
  - HEART RATE INCREASED [None]
  - HEART RATE IRREGULAR [None]
  - MALAISE [None]
  - PALPITATIONS [None]
  - SINUS ARREST [None]
